FAERS Safety Report 16229360 (Version 1)
Quarter: 2019Q2

REPORT INFORMATION
  Report Type: Spontaneous
  Country: DE (occurrence: DE)
  Receive Date: 20190423
  Receipt Date: 20190423
  Transmission Date: 20190711
  Serious: Yes (Other)
  Sender: FDA-Public Use
  Company Number: DE-ALLERGAN-1917035US

PATIENT
  Sex: Female

DRUGS (6)
  1. TRIPTORELIN PAMOATE - BP [Suspect]
     Active Substance: TRIPTORELIN PAMOATE
     Indication: ASSISTED REPRODUCTIVE TECHNOLOGY
     Dosage: 0.1 (UNITS NOT REPORTED)
     Route: 065
  2. CHORIONIC GONADOTROPIN [Suspect]
     Active Substance: CHORIOGONADOTROPIN ALFA
     Indication: ASSISTED REPRODUCTIVE TECHNOLOGY
     Route: 065
  3. PUREGON (FOLLITROPIN) [Suspect]
     Active Substance: FOLLITROPIN
     Indication: ASSISTED REPRODUCTIVE TECHNOLOGY
     Dosage: 150 (UNITS NOT REPORTED)
     Route: 065
  4. PROGESTERON [Concomitant]
     Active Substance: PROGESTERONE
     Indication: OVULATION INDUCTION
     Dosage: 600 MG, QD
     Route: 067
  5. HUMAN MENOPAUSAL GONADOTROPHIN [Concomitant]
     Active Substance: GONADOTROPHIN, CHORIONIC
     Indication: ASSISTED REPRODUCTIVE TECHNOLOGY
     Dosage: 5000 IU, SINGLE
     Route: 065
     Dates: start: 20190108
  6. HUMAN MENOPAUSAL GONADOTROPHIN [Concomitant]
     Active Substance: GONADOTROPHIN, CHORIONIC
     Dosage: 10000 IU, SINGLE
     Route: 065
     Dates: start: 20190110

REACTIONS (1)
  - Ovarian hyperstimulation syndrome [Recovered/Resolved]

NARRATIVE: CASE EVENT DATE: 2019
